FAERS Safety Report 16581871 (Version 2)
Quarter: 2019Q3

REPORT INFORMATION
  Report Type: Report from Study
  Country: KR (occurrence: KR)
  Receive Date: 20190716
  Receipt Date: 20190824
  Transmission Date: 20191004
  Serious: Yes (Death)
  Sender: FDA-Public Use
  Company Number: KR-CELLTRION INC.-2019KR022823

PATIENT

DRUGS (37)
  1. HERZUMA [Suspect]
     Active Substance: TRASTUZUMAB-PKRB
     Indication: BREAST CANCER METASTATIC
     Dosage: 405.6 MG, 8MG/KG, EVERY 3 WEEKS
     Route: 042
     Dates: start: 20190618, end: 20190618
  2. LETROZOLE. [Suspect]
     Active Substance: LETROZOLE
     Indication: BREAST CANCER METASTATIC
     Dosage: UNK
     Route: 048
     Dates: start: 20190618, end: 20190618
  3. IRCODON [Concomitant]
     Active Substance: OXYCODONE HYDROCHLORIDE
     Indication: ARTHRALGIA
     Dosage: 5 MG, TID
     Route: 048
     Dates: start: 20190702
  4. CAROL-F [Concomitant]
     Indication: MYALGIA
  5. MACPERAN [Concomitant]
     Active Substance: METOCLOPRAMIDE HYDROCHLORIDE
     Indication: NAUSEA
     Dosage: 10 MG, PRN
     Route: 048
     Dates: start: 20190708
  6. RIBOCICLIB. [Suspect]
     Active Substance: RIBOCICLIB
     Indication: BREAST CANCER METASTATIC
     Dosage: UNK
     Route: 048
     Dates: start: 20190618, end: 20190618
  7. LETROZOLE. [Suspect]
     Active Substance: LETROZOLE
     Dosage: CYCLE 2
     Dates: start: 20190708, end: 20190708
  8. MAGNESIUM OXIDE. [Concomitant]
     Active Substance: MAGNESIUM OXIDE
     Indication: DYSPEPSIA
     Dosage: 250 MG, TID
     Route: 048
     Dates: start: 20190615, end: 20190707
  9. ASCORBIC ACID. [Concomitant]
     Active Substance: ASCORBIC ACID
     Dosage: 100 MG, QD
     Route: 042
     Dates: start: 20190625, end: 20190625
  10. NUCYNTA ER [Concomitant]
     Active Substance: TAPENTADOL HYDROCHLORIDE
     Indication: ARTHRALGIA
     Dosage: 50 MG, BID
     Route: 048
     Dates: start: 20190702, end: 20190707
  11. TANTUM [BENZYDAMINE HYDROCHLORIDE] [Concomitant]
     Indication: MUCOSITIS MANAGEMENT
     Dosage: 500 ML, PRN
     Route: 048
     Dates: start: 20190615, end: 20190624
  12. BEECOM HEXA [Concomitant]
     Indication: DECREASED APPETITE
     Dosage: 2 ML, QD
     Route: 042
     Dates: start: 20190618, end: 20190618
  13. MYPOL [CODEINE PHOSPHATE;IBUPROFEN;PARACETAMOL] [Concomitant]
     Indication: MYALGIA
  14. CELEBREX [Concomitant]
     Active Substance: CELECOXIB
     Indication: MYALGIA
  15. HERZUMA [Suspect]
     Active Substance: TRASTUZUMAB-PKRB
     Dosage: 272.4 MG, 6MG/KG, EVERY 3 WEEKS
     Route: 042
     Dates: start: 20190708, end: 20190708
  16. IRCODON [Concomitant]
     Active Substance: OXYCODONE HYDROCHLORIDE
     Indication: MYALGIA
     Dosage: 5 MG, QD
     Route: 048
     Dates: start: 20190611, end: 20190624
  17. FREAMINE III NOS [Concomitant]
     Active Substance: AMINO ACIDS
     Dosage: 250 ML, QD
     Route: 042
     Dates: start: 20190625, end: 20190625
  18. BEECOM HEXA [Concomitant]
     Dosage: 2 ML, QD
     Route: 042
     Dates: start: 20190625, end: 20190625
  19. ASCORBIC ACID. [Concomitant]
     Active Substance: ASCORBIC ACID
     Dosage: 100 MG, QD
     Route: 042
     Dates: start: 20190708, end: 20190708
  20. MYPOL [CODEINE PHOSPHATE;IBUPROFEN;PARACETAMOL] [Concomitant]
     Indication: ARTHRALGIA
     Dosage: 1 DF, TID
     Route: 048
     Dates: start: 20190625, end: 20190701
  21. LANSTON [Concomitant]
     Active Substance: LANSOPRAZOLE
     Indication: DYSPEPSIA
     Dosage: 15 MG, QD
     Route: 048
     Dates: start: 20190625
  22. MOTILITONE [Concomitant]
     Active Substance: HERBALS
     Indication: DYSPEPSIA
     Dosage: 30 MG, TID
     Route: 048
     Dates: start: 20190603, end: 20190624
  23. DUROGESIC [Concomitant]
     Active Substance: FENTANYL
     Indication: MYALGIA
     Dosage: 2.1 MG, SKIN, PER 3 DAYS
     Dates: start: 20190605, end: 20190624
  24. MAGNESIUM OXIDE. [Concomitant]
     Active Substance: MAGNESIUM OXIDE
     Indication: CONSTIPATION
  25. CELEBREX [Concomitant]
     Active Substance: CELECOXIB
     Indication: ARTHRALGIA
     Dosage: 200 MG
     Route: 048
     Dates: start: 20190708
  26. ASCORBIC ACID. [Concomitant]
     Active Substance: ASCORBIC ACID
     Indication: DECREASED APPETITE
     Dosage: 100 MG, QD
     Route: 042
     Dates: start: 20190618, end: 20190618
  27. NUCYNTA ER [Concomitant]
     Active Substance: TAPENTADOL HYDROCHLORIDE
     Indication: MYALGIA
     Dosage: 100 MG, BID
     Route: 048
     Dates: start: 20190708
  28. STILNOX [Concomitant]
     Active Substance: ZOLPIDEM TARTRATE
     Indication: INSOMNIA
     Dosage: 6.25 MG, QD
     Route: 048
     Dates: start: 20190702
  29. DUPHALAC EASY [Concomitant]
     Indication: CONSTIPATION
     Dosage: 15 ML, TID
     Route: 048
     Dates: start: 20190708
  30. FREAMINE III NOS [Concomitant]
     Active Substance: AMINO ACIDS
     Dosage: 250 ML, QD
     Route: 042
     Dates: start: 20190708, end: 20190708
  31. BEECOM HEXA [Concomitant]
     Dosage: 2 ML, QD
     Route: 042
     Dates: start: 20190708, end: 20190708
  32. RIBOCICLIB. [Suspect]
     Active Substance: RIBOCICLIB
     Dosage: CYCLE 2
     Dates: start: 20190708, end: 20190708
  33. ULTRACET [Concomitant]
     Active Substance: ACETAMINOPHEN\TRAMADOL HYDROCHLORIDE
     Indication: MYALGIA
     Dosage: 2 DF, BID
     Route: 048
     Dates: start: 20190603, end: 20190624
  34. GASTIIN CR [Concomitant]
     Indication: DYSPEPSIA
     Dosage: 15 MG, QD
     Route: 048
     Dates: start: 20190603, end: 20190624
  35. NEXIUM [Concomitant]
     Active Substance: ESOMEPRAZOLE MAGNESIUM
     Indication: DYSPEPSIA
     Dosage: 20 MG, QD
     Route: 048
     Dates: start: 20190615, end: 20190624
  36. FREAMINE III NOS [Concomitant]
     Active Substance: AMINO ACIDS
     Indication: DECREASED APPETITE
     Dosage: 250 ML, QD
     Route: 042
     Dates: start: 20190618, end: 20190618
  37. CAROL-F [Concomitant]
     Indication: ARTHRALGIA
     Dosage: 1 DF, TID
     Route: 048
     Dates: start: 20190702, end: 20190707

REACTIONS (3)
  - Sudden death [Fatal]
  - Sinus tachycardia [Unknown]
  - Pain [Unknown]

NARRATIVE: CASE EVENT DATE: 20190710
